FAERS Safety Report 23490972 (Version 1)
Quarter: 2024Q1

REPORT INFORMATION
  Report Type: Spontaneous
  Country: US (occurrence: None)
  Receive Date: 20240206
  Receipt Date: 20240206
  Transmission Date: 20240410
  Serious: No
  Sender: FDA-Public Use
  Company Number: US-ROCHE-3277245

PATIENT
  Age: 9 Year
  Sex: Male

DRUGS (6)
  1. NUTROPIN AQ [Suspect]
     Active Substance: SOMATROPIN
     Indication: Hypopituitarism
     Dosage: INJECT 3.4MG SUBCUTANEOUSLY SIX DAYS A WEEK
     Route: 058
     Dates: start: 20160701
  2. NUTROPIN AQ [Suspect]
     Active Substance: SOMATROPIN
  3. NUTROPIN AQ [Suspect]
     Active Substance: SOMATROPIN
     Dosage: INJECT 4.6 MG SUBCUTANEOUSLY ONCE DAILY 6 NIGHTS PER WEEK
     Route: 058
  4. NUTROPIN AQ [Suspect]
     Active Substance: SOMATROPIN
  5. AZITHROMYCIN [Concomitant]
     Active Substance: AZITHROMYCIN
  6. PREDNISOLONE SODIUM PHOSPHATE [Concomitant]
     Active Substance: PREDNISOLONE SODIUM PHOSPHATE

REACTIONS (3)
  - Off label use [Unknown]
  - Underdose [Unknown]
  - No adverse event [Unknown]
